FAERS Safety Report 24268066 (Version 8)
Quarter: 2025Q4

REPORT INFORMATION
  Report Type: Spontaneous
  Country: US (occurrence: US)
  Receive Date: 20240830
  Receipt Date: 20251119
  Transmission Date: 20260118
  Serious: No
  Sender: DAIICHI
  Company Number: US-DAIICHI SANKYO, INC.-DSU-2024-142821AA

PATIENT
  Age: 47 Year
  Sex: Male

DRUGS (2)
  1. TURALIO [Suspect]
     Active Substance: PEXIDARTINIB HYDROCHLORIDE
     Indication: Connective tissue neoplasm
     Dosage: 125 MG, BID (2 CAPSULES BY MOUTH TWICE DAILY (MORNING + EVENING))
     Route: 048
     Dates: start: 20240816
  2. TURALIO [Suspect]
     Active Substance: PEXIDARTINIB HYDROCHLORIDE
     Indication: Soft tissue neoplasm
     Dosage: 125 MG, BID
     Route: 048

REACTIONS (7)
  - Somnolence [Not Recovered/Not Resolved]
  - Pruritus [Not Recovered/Not Resolved]
  - Rash [Recovered/Resolved]
  - Hair colour changes [Not Recovered/Not Resolved]
  - Foot operation [Recovering/Resolving]
  - Product dose omission issue [Not Recovered/Not Resolved]
  - Product dose omission in error [Not Recovered/Not Resolved]

NARRATIVE: CASE EVENT DATE: 20250304
